FAERS Safety Report 4294550-9 (Version None)
Quarter: 2004Q1

REPORT INFORMATION
  Report Type: 
  Country: None (occurrence: None)
  Receive Date: 20040213
  Receipt Date: 20040114
  Transmission Date: 20041129
  Serious: Yes (Other)
  Sender: FDA-Public Use
  Company Number: PHEH2004US00841

PATIENT
  Age: 66 Year
  Sex: Female

DRUGS (1)
  1. CALCITONIN-SALMON [Suspect]
     Dosage: 100 IU, UNK

REACTIONS (3)
  - DISORIENTATION [None]
  - NAUSEA [None]
  - TREMOR [None]
